FAERS Safety Report 20610522 (Version 2)
Quarter: 2022Q1

REPORT INFORMATION
  Report Type: Other
  Country: AE (occurrence: None)
  Receive Date: 20220318
  Receipt Date: 20220330
  Transmission Date: 20220423
  Serious: Yes (Other)
  Sender: FDA-Public Use
  Company Number: AE-ROCHE-3046597

PATIENT
  Sex: Female

DRUGS (3)
  1. KADCYLA [Suspect]
     Active Substance: ADO-TRASTUZUMAB EMTANSINE
     Indication: Breast cancer
     Dosage: INTERVAL 3 WEEKS
     Route: 065
  2. HERCEPTIN [Suspect]
     Active Substance: TRASTUZUMAB
     Indication: Product used for unknown indication
     Route: 065
  3. PACLITAXEL [Concomitant]
     Active Substance: PACLITAXEL

REACTIONS (6)
  - Radical mastectomy [Unknown]
  - Breast neoplasm [Unknown]
  - Neoplasm [Unknown]
  - Neoplasm [Unknown]
  - Bone lesion [Unknown]
  - Axillary lymphadenectomy [Unknown]
